FAERS Safety Report 9538659 (Version 12)
Quarter: 2015Q1

REPORT INFORMATION
  Report Type: Report from Study
  Country: CA (occurrence: CA)
  Receive Date: 20130920
  Receipt Date: 20150217
  Transmission Date: 20150721
  Serious: Yes (Other)
  Sender: FDA-Public Use
  Company Number: PHHY2013CA104276

PATIENT
  Sex: Female

DRUGS (2)
  1. TASIGNA [Suspect]
     Active Substance: NILOTINIB
     Indication: CHRONIC MYELOID LEUKAEMIA
     Dosage: 300 MG, BID
     Route: 048
     Dates: start: 20130419
  2. TASIGNA [Suspect]
     Active Substance: NILOTINIB
     Dosage: 450 MG, DAILY (300 MG QAM AND 150 MG QPM)
     Route: 048
     Dates: start: 201308

REACTIONS (37)
  - Abdominal distension [Unknown]
  - Headache [Unknown]
  - Vision blurred [Unknown]
  - Crepitations [Unknown]
  - Dandruff [Unknown]
  - Scab [Unknown]
  - Menopause [Unknown]
  - Pruritus [Unknown]
  - Dry eye [Unknown]
  - Dry throat [Unknown]
  - Swelling [Recovered/Resolved]
  - Acne [Unknown]
  - Chromaturia [Unknown]
  - Blood cholesterol increased [Unknown]
  - Palpitations [Unknown]
  - Sensation of foreign body [Unknown]
  - Photophobia [Unknown]
  - Rhinorrhoea [Unknown]
  - Dyspepsia [Unknown]
  - Eye irritation [Unknown]
  - Menstruation irregular [Unknown]
  - Lymph node pain [Recovered/Resolved]
  - Alopecia [Unknown]
  - Skin atrophy [Unknown]
  - Dry skin [Unknown]
  - Migraine [Unknown]
  - Urinary tract infection [Recovered/Resolved]
  - Liver disorder [Unknown]
  - Erythema [Unknown]
  - Flushing [Unknown]
  - Blood pressure increased [Unknown]
  - Skin discolouration [Unknown]
  - Feeling hot [Unknown]
  - Lymphadenopathy [Recovered/Resolved]
  - Myalgia [Unknown]
  - Fatigue [Unknown]
  - Dry mouth [Unknown]
